FAERS Safety Report 16172385 (Version 1)
Quarter: 2019Q2

REPORT INFORMATION
  Report Type: Other
  Country: IT (occurrence: IT)
  Receive Date: 20190409
  Receipt Date: 20190409
  Transmission Date: 20190711
  Serious: Yes (Hospitalization)
  Sender: FDA-Public Use
  Company Number: IT-CELLTRION INC.-2019IT020195

PATIENT

DRUGS (1)
  1. TRUXIMA [Suspect]
     Active Substance: RITUXIMAB-ABBS
     Indication: CHRONIC LYMPHOCYTIC LEUKAEMIA
     Dosage: 570 MG, PER 1 CYCLE
     Route: 042
     Dates: start: 20190114, end: 20190114

REACTIONS (5)
  - Rash [Recovered/Resolved]
  - Palatal oedema [Recovered/Resolved]
  - Underdose [Unknown]
  - Swollen tongue [Recovered/Resolved]
  - Speech disorder [Recovered/Resolved]

NARRATIVE: CASE EVENT DATE: 20190114
